FAERS Safety Report 8958568 (Version 1)
Quarter: 2012Q4

REPORT INFORMATION
  Report Type: Spontaneous
  Country: US (occurrence: None)
  Receive Date: 20121207
  Receipt Date: 20121207
  Transmission Date: 20130627
  Serious: No
  Sender: FDA-Public Use
  Company Number: None

PATIENT
  Sex: Male
  Weight: 86.18 kg

DRUGS (2)
  1. BUDEPRION [Suspect]
     Indication: ANXIETY DISORDER
     Dosage: 150 mg QD PO
     Route: 048
     Dates: start: 201107, end: 201211
  2. WELLBUTRIN [Concomitant]

REACTIONS (3)
  - Drug ineffective [None]
  - Product formulation issue [None]
  - Product quality issue [None]
